FAERS Safety Report 8894987 (Version 2)
Quarter: 2015Q3

REPORT INFORMATION
  Report Type: Spontaneous
  Country: US (occurrence: US)
  Receive Date: 20121107
  Receipt Date: 20150916
  Transmission Date: 20151125
  Serious: No
  Sender: FDA-Public Use
  Company Number: US-AMGEN-USASP2011049155

PATIENT
  Age: 54 Year
  Sex: Female
  Weight: 63.39 kg

DRUGS (10)
  1. ASPIRIN. [Concomitant]
     Active Substance: ASPIRIN
     Dosage: 81 MG, UNK
  2. TRILEPTAL [Concomitant]
     Active Substance: OXCARBAZEPINE
     Dosage: 150 MG, UNK
  3. SIMVASTATIN. [Concomitant]
     Active Substance: SIMVASTATIN
     Dosage: 100 MG, UNK
  4. VITAMIN D                          /00107901/ [Concomitant]
     Active Substance: ERGOCALCIFEROL
  5. CALCIUM [Concomitant]
     Active Substance: CALCIUM
  6. PLAVIX [Concomitant]
     Active Substance: CLOPIDOGREL BISULFATE
     Dosage: 75 MG, UNK
  7. TOPAMAX [Concomitant]
     Active Substance: TOPIRAMATE
     Dosage: 50 MG, UNK
  8. METOPROLOL [Concomitant]
     Active Substance: METOPROLOL
     Dosage: 100 MG, UNK
  9. ENBREL [Suspect]
     Active Substance: ETANERCEPT
     Indication: PRODUCT USED FOR UNKNOWN INDICATION
     Dosage: 50 MG, QWK
     Route: 058
  10. MAGNESIUM [Concomitant]
     Active Substance: MAGNESIUM

REACTIONS (5)
  - Tooth disorder [Unknown]
  - Injection site bruising [Unknown]
  - Increased tendency to bruise [Unknown]
  - Injection site pain [Unknown]
  - Contusion [Unknown]

NARRATIVE: CASE EVENT DATE: 20110922
